FAERS Safety Report 6991338-2 (Version None)
Quarter: 2010Q3

REPORT INFORMATION
  Report Type: 
  Country: None (occurrence: None)
  Receive Date: 20100916
  Receipt Date: 20090917
  Transmission Date: 20110219
  Serious: No
  Sender: FDA-Public Use
  Company Number: US-WYE-H10601309

PATIENT
  Sex: Female

DRUGS (1)
  1. ADVIL PM [Suspect]
     Indication: HEADACHE
     Dosage: TOOK TWO OF THE LEAKING CAPSULES X 1
     Route: 048
     Dates: start: 20090101, end: 20090101

REACTIONS (2)
  - CAPSULE ISSUE [None]
  - THROAT IRRITATION [None]
